FAERS Safety Report 9109644 (Version 1)
Quarter: 2013Q1

REPORT INFORMATION
  Report Type: Spontaneous
  Country: US (occurrence: US)
  Receive Date: 20130222
  Receipt Date: 20130222
  Transmission Date: 20140127
  Serious: No
  Sender: FDA-Public Use
  Company Number: US-BAUSCH-BL-2012-000631

PATIENT
  Age: 57 Year
  Sex: Female

DRUGS (2)
  1. FLURBIPROFEN SODIUM [Suspect]
     Indication: EYE INFLAMMATION
     Dosage: 1 DROPS IN LEFT EYE; FOUR TIMES DAILY
     Route: 047
     Dates: start: 20120808, end: 20120823
  2. HYPROMELLOSE [Concomitant]
     Indication: DRY EYE

REACTIONS (2)
  - Instillation site pain [Recovered/Resolved]
  - Lacrimation increased [Recovered/Resolved]
